FAERS Safety Report 8094877-9 (Version None)
Quarter: 2012Q1

REPORT INFORMATION
  Report Type: 
  Country: None (occurrence: None)
  Receive Date: 20120130
  Receipt Date: 20120118
  Transmission Date: 20120608
  Serious: Yes (Other)
  Sender: FDA-Public Use
  Company Number: ES-BIOGENIDEC-2011BI048040

PATIENT
  Age: 41 Year
  Sex: Male

DRUGS (6)
  1. LYRICA [Concomitant]
  2. TRAMADOL HCL [Concomitant]
  3. CROMATONBIC [Concomitant]
  4. TYSABRI [Suspect]
     Indication: MULTIPLE SCLEROSIS
     Route: 042
     Dates: start: 20081222
  5. TOPAMAX [Concomitant]
  6. LIORESAL [Concomitant]

REACTIONS (1)
  - PHARYNGITIS BACTERIAL [None]
